FAERS Safety Report 4318608-0 (Version None)
Quarter: 2004Q1

REPORT INFORMATION
  Report Type: 
  Country: None (occurrence: None)
  Receive Date: 20040316
  Receipt Date: 20040316
  Transmission Date: 20041129
  Serious: Yes (Hospitalization)
  Sender: FDA-Public Use
  Company Number: None

PATIENT
  Age: 72 Year
  Sex: Male

DRUGS (5)
  1. TEQUIN [Suspect]
     Indication: PNEUMONIA
     Dosage: PO 400 MG
     Route: 048
  2. COUMADIN [Concomitant]
  3. DARVON [Concomitant]
  4. LASIX [Concomitant]
  5. COREG [Concomitant]

REACTIONS (2)
  - CONVULSION [None]
  - HYPOGLYCAEMIA [None]
